FAERS Safety Report 11124910 (Version 1)
Quarter: 2015Q2

REPORT INFORMATION
  Report Type: Spontaneous
  Country: US (occurrence: US)
  Receive Date: 20150520
  Receipt Date: 20150520
  Transmission Date: 20150821
  Serious: Yes (Hospitalization, Other)
  Sender: FDA-Public Use
  Company Number: US-AMGEN-USASP2015030364

PATIENT
  Age: 63 Year
  Sex: Male

DRUGS (1)
  1. BLINCYTO [Suspect]
     Active Substance: BLINATUMOMAB
     Indication: ACUTE LYMPHOCYTIC LEUKAEMIA RECURRENT
     Dosage: UNK
     Route: 065
     Dates: start: 20150307

REACTIONS (16)
  - Haemoglobin decreased [Not Recovered/Not Resolved]
  - Platelet count abnormal [Unknown]
  - Muscle atrophy [Not Recovered/Not Resolved]
  - Malignant neoplasm progression [Not Recovered/Not Resolved]
  - Fluid imbalance [Unknown]
  - Pain in extremity [Not Recovered/Not Resolved]
  - Adverse reaction [Recovered/Resolved]
  - Pyrexia [Recovered/Resolved]
  - Weight decreased [Not Recovered/Not Resolved]
  - Swelling [Unknown]
  - Peripheral swelling [Not Recovered/Not Resolved]
  - Dysstasia [Unknown]
  - Hypertension [Unknown]
  - Gait disturbance [Unknown]
  - Inflammation [Unknown]
  - Catheter site infection [Unknown]

NARRATIVE: CASE EVENT DATE: 201503
